FAERS Safety Report 10905201 (Version 1)
Quarter: 2015Q1

REPORT INFORMATION
  Report Type: Spontaneous
  Country: US (occurrence: None)
  Receive Date: 20150309
  Receipt Date: 20150309
  Transmission Date: 20150721
  Serious: Yes (Disabling)
  Sender: FDA-Public Use
  Company Number: None

PATIENT
  Age: 65 Year
  Sex: Male

DRUGS (1)
  1. INVOKANA [Suspect]
     Active Substance: CANAGLIFLOZIN
     Indication: DIABETES MELLITUS
     Dosage: ONE TABET, ONCE DAILY, TAKEN BY MOUTH
     Route: 048
     Dates: start: 20141127, end: 20141219

REACTIONS (7)
  - Dizziness [None]
  - Rash [None]
  - Bedridden [None]
  - Fall [None]
  - Blood sodium decreased [None]
  - Skin discolouration [None]
  - Renal failure [None]

NARRATIVE: CASE EVENT DATE: 20141218
